FAERS Safety Report 8192613-9 (Version None)
Quarter: 2012Q1

REPORT INFORMATION
  Report Type: 
  Country: None (occurrence: None)
  Receive Date: 20120221
  Receipt Date: 20111103
  Transmission Date: 20120608
  Serious: No
  Sender: FDA-Public Use
  Company Number: 1000025229

PATIENT
  Age: 61 Year
  Sex: Female

DRUGS (14)
  1. VIIBRYD [Suspect]
     Indication: DEPRESSION
     Dates: start: 20110929, end: 20111012
  2. COENZYME Q10 (UBIDECARENONE) (UBIDECARENONE) [Concomitant]
  3. HYDROCHLOROTHIAZIDE [Concomitant]
  4. CALCIUM (CALCIUM) (CALCIUM) [Concomitant]
  5. ASPIRIN [Concomitant]
  6. PRILOSEC (OMEPRAZOLE) (OMEPRAZOLE) [Concomitant]
  7. XANAX (ALPRAZOLAM0 (ALPRAZOLAM) [Concomitant]
  8. NORVASC [Concomitant]
  9. OMEGA-3 (OMEGA-3) (OMEGA-3) [Concomitant]
  10. NITROQUICK (GLYCERYL TRINITRATE) (GLYCERYL TRINITRATE) [Concomitant]
  11. ZOLOFT [Suspect]
  12. ATENOLOL [Concomitant]
  13. WELLBUTRIN (BUPROPION HYDROCHLORIDE) (BUPROPION HYDROCHLORIDE) [Concomitant]
  14. SPIRIVA (TIOTROPIUM BROMIDE) (TIOTROPIUM BROMIDE) [Concomitant]

REACTIONS (1)
  - HALLUCINATION [None]
